FAERS Safety Report 25746044 (Version 1)
Quarter: 2025Q3

REPORT INFORMATION
  Report Type: Spontaneous
  Country: CN (occurrence: CN)
  Receive Date: 20250901
  Receipt Date: 20250901
  Transmission Date: 20251020
  Serious: Yes (Other)
  Sender: ROCHE
  Company Number: CN-CHEPLA-2025010076

PATIENT
  Age: 50 Year
  Sex: Female
  Weight: 49.5 kg

DRUGS (9)
  1. BEVACIZUMAB [Suspect]
     Active Substance: BEVACIZUMAB
     Indication: Cholangiocarcinoma
     Dosage: APPROVAL NO. GYZZ S20190040
     Route: 042
     Dates: start: 20250419, end: 20250419
  2. BEVACIZUMAB [Suspect]
     Active Substance: BEVACIZUMAB
     Dosage: APPROVAL NO. GYZZ S20190040/NS 100ML + BEVACIZUMAB 0.3G IVGTT D1
     Route: 042
     Dates: start: 20250603, end: 20250603
  3. XELODA [Suspect]
     Active Substance: CAPECITABINE
     Indication: Cholangiocarcinoma
     Dosage: APPROVAL NO. GYZZ H20073024/BID, D1-D14
     Route: 048
     Dates: start: 20250419, end: 20250502
  4. XELODA [Suspect]
     Active Substance: CAPECITABINE
     Dosage: APPROVAL NO. GYZZ H20073024/BID
     Route: 048
     Dates: start: 20250603, end: 20250616
  5. KEYTRUDA [Suspect]
     Active Substance: PEMBROLIZUMAB
     Indication: Cholangiocarcinoma
     Dosage: APPROVAL NO. S20180019/NS 100ML + PEMBROLIZUMAB 200MG IVGTT D1, NS 100ML
     Route: 042
     Dates: start: 20250419, end: 20250419
  6. KEYTRUDA [Suspect]
     Active Substance: PEMBROLIZUMAB
     Dosage: APPROVAL NO. S20180019/NS 100ML + PEMBROLIZUMAB 200MG IVGTT D1
     Route: 042
     Dates: start: 20250603, end: 20250603
  7. SODIUM CHLORIDE [Concomitant]
     Active Substance: SODIUM CHLORIDE
     Indication: Medication dilution
     Dosage: APPROVAL NO. GYZZ H13023202
     Route: 042
     Dates: start: 20250419, end: 20250419
  8. SODIUM CHLORIDE [Concomitant]
     Active Substance: SODIUM CHLORIDE
     Dosage: APPROVAL NO. GYZZ H13023202
     Route: 042
     Dates: start: 20250419, end: 20250419
  9. SODIUM CHLORIDE [Concomitant]
     Active Substance: SODIUM CHLORIDE
     Dosage: APPROVAL NO. GYZZ H13023202/
     Route: 042
     Dates: start: 20250603, end: 20250603

REACTIONS (4)
  - Neutropenia [Recovering/Resolving]
  - Leukopenia [Recovering/Resolving]
  - Condition aggravated [Recovering/Resolving]
  - Off label use [Unknown]

NARRATIVE: CASE EVENT DATE: 20250419
